FAERS Safety Report 18066349 (Version 1)
Quarter: 2020Q3

REPORT INFORMATION
  Report Type: Spontaneous
  Country: GB (occurrence: GB)
  Receive Date: 20200724
  Receipt Date: 20200724
  Transmission Date: 20201103
  Serious: Yes (Other)
  Sender: FDA-Public Use
  Company Number: GB-PFIZER INC-2020281651

PATIENT
  Age: 52 Year
  Sex: Male

DRUGS (7)
  1. FOLIC ACID. [Concomitant]
     Active Substance: FOLIC ACID
     Dosage: 1 DF, WEEKLY
     Dates: start: 20190609, end: 20200629
  2. NAPROXEN. [Concomitant]
     Active Substance: NAPROXEN
     Dosage: 2 DF, 1X/DAY  1 TWICE A DAY WHEN REQUIRED
     Dates: start: 20180913
  3. BETAMETHASONE VALERATE. [Concomitant]
     Active Substance: BETAMETHASONE VALERATE
     Dosage: APPLY WHEN REQUIRED
     Dates: start: 20140828
  4. METHOTREXATE SODIUM. [Suspect]
     Active Substance: METHOTREXATE SODIUM
     Indication: RHEUMATOID ARTHRITIS
     Dosage: 2.5 MG
     Route: 048
     Dates: start: 20200108, end: 2020
  5. CALCIPOTRIOL [Concomitant]
     Active Substance: CALCIPOTRIENE
     Dosage: APPLY TWICE DAILY FOR UP TO ONE WEEK AT A TIME
     Dates: start: 20171129
  6. LEFLUNOMIDE. [Concomitant]
     Active Substance: LEFLUNOMIDE
     Dosage: TAKE ONE AND A HALF TABLETS EACH DAY AS DIRECTED
     Dates: start: 20200327
  7. OMEPRAZOLE. [Concomitant]
     Active Substance: OMEPRAZOLE
     Indication: PROPHYLAXIS
     Dosage: TAKE ONE DAILY TO PROTECT STOMACH FROM NAPROXEN
     Dates: start: 20180913

REACTIONS (1)
  - Peyronie^s disease [Not Recovered/Not Resolved]

NARRATIVE: CASE EVENT DATE: 20200108
